FAERS Safety Report 8653148 (Version 4)
Quarter: 2012Q4

REPORT INFORMATION
  Report Type: Spontaneous
  Country: JP (occurrence: None)
  Receive Date: 20120605
  Receipt Date: 20120809
  Transmission Date: 20130627
  Serious: Yes (Death)
  Sender: FDA-Public Use
  Company Number: 2012032497

PATIENT
  Age: 81 Year
  Sex: Male

DRUGS (15)
  1. ALBUMINAR-5 [Suspect]
     Indication: HYPOALBUMINAEMIA
     Dosage: 250 ML DAILY DOSE; 12.5G/250 ML INTRAVENOUS (NOT OTHERWISE  - INTRAVENOUS (NOT OTHERWISE SPECIFIED)
     Route: 042
     Dates: start: 20120411
  2. ALBUMINAR-5 [Suspect]
     Indication: HYPOVOLAEMIA
     Dosage: 250 ML DAILY DOSE; 12.5G/250 ML INTRAVENOUS (NOT OTHERWISE  - INTRAVENOUS (NOT OTHERWISE SPECIFIED)
     Route: 042
     Dates: start: 20120411
  3. DOBUPUM (DOBUTAMINE HYDROCHLORIDE) [Concomitant]
  4. INOVAN (DOPANINE HYDROCHLORIDE) [Concomitant]
  5. HESPANDER  /01921901/ (HESPANDER /01921901/) [Concomitant]
  6. NEOSYNESIN [Concomitant]
  7. SAVIOSOL (SAVIOSOL) [Concomitant]
  8. HANP (CARPERITIDE) [Concomitant]
  9. CALCIUM GLUCONATE [Concomitant]
  10. XYLONOR NOR-ADRENALIN (INDOLOR /00216001/) [Concomitant]
  11. ATROPINE SULFATE [Concomitant]
  12. HYDROCORTISONE SODIUM SUCCINATE [Concomitant]
  13. BOSMIN /00003902/(EPINEPHRINE HYDROCHLORIDE) [Concomitant]
  14. DORMICUM /00036201/(NITRAZEPAM) [Concomitant]
  15. ROCURONIUM BROMIDE [Concomitant]

REACTIONS (7)
  - CARDIAC ARREST [None]
  - ANAPHYLACTIC SHOCK [None]
  - DRUG HYPERSENSITIVITY [None]
  - HYPOTENSION [None]
  - HYPOXIA [None]
  - ACUTE RESPIRATORY DISTRESS SYNDROME [None]
  - CIRCULATORY COLLAPSE [None]
